FAERS Safety Report 6146307-1 (Version None)
Quarter: 2009Q2

REPORT INFORMATION
  Report Type: 
  Country: None (occurrence: None)
  Receive Date: 20090403
  Receipt Date: 20090403
  Transmission Date: 20091009
  Serious: No
  Sender: FDA-Public Use
  Company Number: None

PATIENT

DRUGS (1)
  1. DESMOPRESSIN ACETATE [Suspect]

REACTIONS (1)
  - MEDICATION ERROR [None]
